FAERS Safety Report 7237314-6 (Version None)
Quarter: 2011Q1

REPORT INFORMATION
  Report Type: 
  Country: None (occurrence: None)
  Receive Date: 20110121
  Receipt Date: 20110110
  Transmission Date: 20110831
  Serious: Yes (Hospitalization, Other)
  Sender: FDA-Public Use
  Company Number: US-ELI_LILLY_AND_COMPANY-US201008000949

PATIENT
  Sex: Male

DRUGS (11)
  1. DIOVAN [Concomitant]
  2. KLOR-CON [Concomitant]
  3. CARDIZEM [Concomitant]
  4. FLOMAX [Concomitant]
  5. CRESTOR [Concomitant]
     Indication: BLOOD CHOLESTEROL
  6. CLARINEX [Concomitant]
  7. FORTEO [Suspect]
     Indication: BONE DISORDER
     Dosage: 20 UG, DAILY (1/D)
  8. ANTIHYPERTENSIVE AGENT [Concomitant]
  9. FORTEO [Suspect]
     Dosage: 20 UG, DAILY (1/D)
  10. VITAMIN D [Concomitant]
     Dosage: UNK, OTHER
  11. BUMEX [Concomitant]

REACTIONS (5)
  - DEVICE FAILURE [None]
  - ARTHRALGIA [None]
  - POSTOPERATIVE WOUND INFECTION [None]
  - HOSPITALISATION [None]
  - ONYCHOCLASIS [None]
